FAERS Safety Report 24582317 (Version 1)
Quarter: 2024Q4

REPORT INFORMATION
  Report Type: Spontaneous
  Country: ES (occurrence: ES)
  Receive Date: 20241105
  Receipt Date: 20241105
  Transmission Date: 20250115
  Serious: Yes (Other)
  Sender: ACCORD
  Company Number: None

PATIENT
  Age: 51 Year
  Sex: Female

DRUGS (2)
  1. ESCITALOPRAM [Suspect]
     Active Substance: ESCITALOPRAM OXALATE
     Indication: Bipolar I disorder
     Dosage: 10MG/24H
     Dates: start: 20231213, end: 20240314
  2. LURASIDONE [Suspect]
     Active Substance: LURASIDONE
     Indication: Schizoaffective disorder
     Dosage: 37MG/24H
     Dates: start: 20231006, end: 20240314

REACTIONS (1)
  - Hepatic cytolysis [Recovered/Resolved]

NARRATIVE: CASE EVENT DATE: 20240314
